FAERS Safety Report 9808782 (Version 1)
Quarter: 2014Q1

REPORT INFORMATION
  Report Type: Spontaneous
  Country: US (occurrence: US)
  Receive Date: 20140110
  Receipt Date: 20140110
  Transmission Date: 20141002
  Serious: Yes (Death)
  Sender: FDA-Public Use
  Company Number: US-PFIZER INC-2014007932

PATIENT
  Age: 70 Year
  Sex: Male

DRUGS (4)
  1. FOSPHENYTOIN SODIUM [Suspect]
     Dosage: UNK
  2. METOPROLOL [Suspect]
     Dosage: UNK
  3. BUPROPION [Suspect]
     Dosage: UNK
  4. TRAMADOL [Suspect]
     Dosage: UNK

REACTIONS (1)
  - Completed suicide [Fatal]
